FAERS Safety Report 9833221 (Version 1)
Quarter: 2014Q1

REPORT INFORMATION
  Report Type: Spontaneous
  Country: US (occurrence: US)
  Receive Date: 20140121
  Receipt Date: 20140121
  Transmission Date: 20141002
  Serious: No
  Sender: FDA-Public Use
  Company Number: US-BAUSCH-BL-2013-001714

PATIENT
  Age: 57 Year
  Sex: Male

DRUGS (2)
  1. ALAWAY (KETOTIFEN FUMARATE OPHTHALMIC SOLUTION) [Suspect]
     Indication: DRY EYE
     Dosage: 1 DROP; AS REQUIRED; OPHTHALMIC
     Route: 047
     Dates: start: 2012, end: 201303
  2. ALAWAY (KETOTIFEN FUMARATE OPHTHALMIC SOLUTION) [Suspect]
     Indication: OFF LABEL USE

REACTIONS (1)
  - Strabismus [Recovered/Resolved]
